FAERS Safety Report 13345627 (Version 2)
Quarter: 2017Q1

REPORT INFORMATION
  Report Type: Spontaneous
  Country: GR (occurrence: GR)
  Receive Date: 20170317
  Receipt Date: 20170328
  Transmission Date: 20170428
  Serious: Yes (Other)
  Sender: FDA-Public Use
  Company Number: GR-EMD SERONO-8148661

PATIENT
  Age: 39 Year
  Sex: Male

DRUGS (2)
  1. REBIF [Suspect]
     Active Substance: INTERFERON BETA-1A
     Indication: MULTIPLE SCLEROSIS
     Dates: start: 200411, end: 2014
  2. REBIF [Suspect]
     Active Substance: INTERFERON BETA-1A
     Dates: start: 2014, end: 201503

REACTIONS (1)
  - Basal cell carcinoma [Recovered/Resolved]
